FAERS Safety Report 13084832 (Version 1)
Quarter: 2017Q1

REPORT INFORMATION
  Report Type: Spontaneous
  Country: US (occurrence: US)
  Receive Date: 20170104
  Receipt Date: 20170104
  Transmission Date: 20170428
  Serious: No
  Sender: FDA-Public Use
  Company Number: US-ARBOR PHARMACEUTICALS, LLC-US-2015ARB002571

PATIENT

DRUGS (1)
  1. SKLICE [Suspect]
     Active Substance: IVERMECTIN
     Indication: LICE INFESTATION
     Dosage: FORM: LOTION
     Route: 065
     Dates: start: 20150303, end: 20150303

REACTIONS (3)
  - Eye swelling [Unknown]
  - Swelling [Unknown]
  - Rash macular [Unknown]

NARRATIVE: CASE EVENT DATE: 20150304
